FAERS Safety Report 7906489-5 (Version None)
Quarter: 2011Q4

REPORT INFORMATION
  Report Type: 
  Country: None (occurrence: None)
  Receive Date: 20111110
  Receipt Date: 20111031
  Transmission Date: 20120403
  Serious: Yes (Hospitalization, Disabling)
  Sender: FDA-Public Use
  Company Number: US-JNJFOC-20111003614

PATIENT
  Sex: Male
  Weight: 69.4 kg

DRUGS (4)
  1. INVEGA SUSTENNA [Suspect]
     Dosage: MONTHLY
     Route: 030
     Dates: end: 20110401
  2. LITHIUM CARBONATE [Concomitant]
     Indication: BIPOLAR I DISORDER
     Route: 048
  3. INVEGA SUSTENNA [Suspect]
     Route: 030
  4. INVEGA SUSTENNA [Suspect]
     Indication: SCHIZOAFFECTIVE DISORDER BIPOLAR TYPE
     Route: 030

REACTIONS (5)
  - VISION BLURRED [None]
  - DIZZINESS [None]
  - PSYCHOTIC DISORDER [None]
  - BLOOD BILIRUBIN INCREASED [None]
  - TREATMENT NONCOMPLIANCE [None]
